FAERS Safety Report 4595856-6 (Version None)
Quarter: 2005Q1

REPORT INFORMATION
  Report Type: 
  Country: None (occurrence: None)
  Receive Date: 20050302
  Receipt Date: 20041202
  Transmission Date: 20050727
  Serious: No
  Sender: FDA-Public Use
  Company Number: 200413702JP

PATIENT
  Age: 65 Year
  Sex: Female

DRUGS (3)
  1. AMARYL [Suspect]
     Indication: DIABETES MELLITUS
     Route: 048
     Dates: start: 20040709
  2. DIOVAN [Concomitant]
     Route: 048
     Dates: start: 20010918
  3. CONIEL [Concomitant]
     Route: 048
     Dates: start: 20020125

REACTIONS (1)
  - MYOGLOBIN BLOOD INCREASED [None]
